FAERS Safety Report 7042616-2 (Version None)
Quarter: 2010Q3

REPORT INFORMATION
  Report Type: 
  Country: None (occurrence: None)
  Receive Date: 20100929
  Receipt Date: 20100816
  Transmission Date: 20110219
  Serious: No
  Sender: FDA-Public Use
  Company Number: US-WYE-H16932610

PATIENT
  Age: 62 Year
  Sex: Female

DRUGS (4)
  1. PRISTIQ [Suspect]
     Indication: DEPRESSION
     Dosage: 50 MG 1X PER 1 DAY, ORAL
     Route: 048
     Dates: start: 20090101
  2. SEROQUEL [Concomitant]
  3. LEVOXYL [Concomitant]
  4. BUPROPION HCL [Concomitant]

REACTIONS (1)
  - COELIAC DISEASE [None]
